FAERS Safety Report 6140086-X (Version None)
Quarter: 2009Q1

REPORT INFORMATION
  Report Type: 
  Country: None (occurrence: None)
  Receive Date: 20090324
  Receipt Date: 20090318
  Transmission Date: 20090719
  Serious: Yes (Life-Threatening)
  Sender: FDA-Public Use
  Company Number: GXKR2009GB03439

PATIENT
  Age: 49 Year
  Sex: Male

DRUGS (10)
  1. CITALOPRAM HYDROBROMIDE [Suspect]
     Indication: ANXIETY
     Dosage: 20 MG, QD, ORAL
     Route: 048
     Dates: start: 20081101, end: 20090226
  2. ENALAPRIL MALEATE [Suspect]
     Indication: HYPERTENSION
     Dosage: 40 MG, ORAL
     Route: 048
     Dates: end: 20090226
  3. AMITRIPTYLINE HYDROCHLORIDE [Suspect]
     Indication: ANXIETY
     Dosage: 25 MG, QD, ORAL
     Route: 048
     Dates: end: 20090226
  4. INDAPAMIDE [Suspect]
     Indication: HYPERTENSION
     Dosage: 1.5 MG, QD, ORAL
     Route: 048
     Dates: start: 20080601, end: 20090226
  5. OXCARBAZEPINE [Suspect]
     Indication: EPILEPSY
     Dosage: 1.2 G, BID, ORAL ; 300 MG, QD, ORAL
     Route: 048
     Dates: end: 20090226
  6. AMLODIPINE [Concomitant]
  7. IBUPROFEN [Concomitant]
  8. ACETAMINOPHEN [Concomitant]
  9. RANITIDINE [Concomitant]
  10. SIMVASTATIN [Concomitant]

REACTIONS (4)
  - AGGRESSION [None]
  - CONFUSIONAL STATE [None]
  - CONVULSION [None]
  - HYPONATRAEMIA [None]
